FAERS Safety Report 20829988 (Version 1)
Quarter: 2022Q2

REPORT INFORMATION
  Report Type: Spontaneous
  Country: DE (occurrence: DE)
  Receive Date: 20220514
  Receipt Date: 20220514
  Transmission Date: 20220721
  Serious: Yes (Other)
  Sender: FDA-Public Use
  Company Number: DE-009507513-2205DEU002360

PATIENT
  Sex: Male

DRUGS (1)
  1. JANUMET [Suspect]
     Active Substance: METFORMIN HYDROCHLORIDE\SITAGLIPTIN PHOSPHATE
     Indication: Diabetes mellitus
     Dosage: 50MG/850MG, ONCE DAILY IN THE EVENING
     Dates: start: 202205

REACTIONS (5)
  - Neoplasm malignant [Unknown]
  - Abdominal pain upper [Unknown]
  - Fatigue [Unknown]
  - Adverse event [Unknown]
  - Incorrect dose administered [Unknown]

NARRATIVE: CASE EVENT DATE: 20220501
